FAERS Safety Report 24706560 (Version 1)
Quarter: 2024Q4

REPORT INFORMATION
  Report Type: Report from Study
  Country: US (occurrence: US)
  Receive Date: 20241206
  Receipt Date: 20241206
  Transmission Date: 20250114
  Serious: Yes (Other)
  Sender: JOHNSON AND JOHNSON
  Company Number: US-JNJFOC-20241215745

PATIENT
  Sex: Female

DRUGS (6)
  1. SPRAVATO [Suspect]
     Active Substance: ESKETAMINE
     Indication: Depression
     Dosage: ^^84 MG, 18 TOTAL DOSES^^
     Route: 045
     Dates: start: 20220908, end: 20221111
  2. SPRAVATO [Suspect]
     Active Substance: ESKETAMINE
     Dosage: ^^UNSPECIFIED DOSE, 1 TOTAL DOSE^^
     Route: 045
     Dates: start: 20221115, end: 20221115
  3. SPRAVATO [Suspect]
     Active Substance: ESKETAMINE
     Dosage: ^^84 MG, 22 TOTAL DOSES^^
     Route: 045
     Dates: start: 20221118, end: 20230512
  4. SPRAVATO [Suspect]
     Active Substance: ESKETAMINE
     Dosage: ^^56 MG, 1 TOTAL DOSE^^
     Route: 045
     Dates: start: 20230526, end: 20230526
  5. SPRAVATO [Suspect]
     Active Substance: ESKETAMINE
     Dosage: ^^84 MG, 19 TOTAL DOSES^^
     Route: 045
     Dates: start: 20230609, end: 20240816
  6. SPRAVATO [Suspect]
     Active Substance: ESKETAMINE
     Dosage: ^^56 MG, 1 TOTAL DOSE^^
     Route: 045
     Dates: start: 20220906, end: 20220906

REACTIONS (1)
  - Neoplasm malignant [Unknown]
